FAERS Safety Report 22053323 (Version 3)
Quarter: 2024Q3

REPORT INFORMATION
  Report Type: Spontaneous
  Country: US (occurrence: US)
  Receive Date: 20230302
  Receipt Date: 20240721
  Transmission Date: 20241016
  Serious: Yes (Hospitalization, Other)
  Sender: MYLAN
  Company Number: None

PATIENT
  Age: 60 Year
  Sex: Male

DRUGS (5)
  1. DEXAMETHASONE [Suspect]
     Active Substance: DEXAMETHASONE
     Indication: Uveitis
     Dosage: UNK, RECEIVED INTRAVITREAL DEXAMETHASONE IMPLANT
     Route: 047
  2. TRIAMCINOLONE [Suspect]
     Active Substance: TRIAMCINOLONE
     Indication: Uveitis
     Dosage: UNK, RECEIVED SUB-TENON^S TRIAMCINOLONE (INTRAOCULAR)
     Route: 047
  3. DIFLUPREDNATE [Suspect]
     Active Substance: DIFLUPREDNATE
     Indication: Uveitis
     Dosage: UNK
     Route: 061
  4. ATROPINE [Concomitant]
     Active Substance: ATROPINE
     Indication: Uveitis
     Dosage: UNK
     Route: 061
  5. COSOPT [Concomitant]
     Active Substance: DORZOLAMIDE HYDROCHLORIDE\TIMOLOL MALEATE
     Indication: Uveitis
     Dosage: UNK
     Route: 061

REACTIONS (7)
  - Retinal occlusive vasculitis [Unknown]
  - Optic disc disorder [Unknown]
  - Vitreous haemorrhage [Unknown]
  - Posterior capsule opacification [Unknown]
  - Cytomegalovirus chorioretinitis [Recovering/Resolving]
  - Cytomegalovirus infection [Recovering/Resolving]
  - Uveitis [Recovering/Resolving]
